FAERS Safety Report 6448424-5 (Version None)
Quarter: 2009Q4

REPORT INFORMATION
  Report Type: 
  Country: None (occurrence: None)
  Receive Date: 20091120
  Receipt Date: 20091110
  Transmission Date: 20100525
  Serious: Yes (Hospitalization, Disabling, Other)
  Sender: FDA-Public Use
  Company Number: PHEH2009US14150

PATIENT
  Sex: Female
  Weight: 68.027 kg

DRUGS (13)
  1. RECLAST [Suspect]
     Indication: OSTEOPOROSIS
     Dosage: 5 MG, ONCE/SINGLE
     Route: 042
     Dates: start: 20090905, end: 20090905
  2. VITAMIN D [Concomitant]
     Dosage: UNK, UNK
  3. GABAPENTIN [Concomitant]
     Dosage: 300 MG, UNK
  4. TRAZODONE HCL [Concomitant]
     Dosage: UNK, UNK
  5. PRILOSEC [Concomitant]
     Dosage: 20 MG, BID
  6. CALCIUM [Concomitant]
     Dosage: 500 MG, BID
  7. CARBIDOPA + LEVODOPA [Concomitant]
     Dosage: UNK, UNK
  8. DARVOCET-N 100 [Concomitant]
     Dosage: UNK, UNK
  9. CYMBALTA [Concomitant]
     Dosage: 30 MG, QD
     Dates: start: 20090908
  10. DALMANE [Concomitant]
     Dosage: UNK, QHS
     Route: 048
     Dates: start: 20091026
  11. CARDIZEM [Concomitant]
     Dosage: UNK, QD
     Route: 048
     Dates: start: 20090908
  12. ATIVAN [Concomitant]
     Dosage: UNK, QD PRN
     Route: 048
     Dates: start: 20090908
  13. AMBIEN [Concomitant]
     Dosage: UNK, QHS
     Route: 048
     Dates: start: 20090908

REACTIONS (14)
  - ABNORMAL BEHAVIOUR [None]
  - APHASIA [None]
  - CRYING [None]
  - DECREASED ACTIVITY [None]
  - DECREASED APPETITE [None]
  - DEPRESSION [None]
  - DISORIENTATION [None]
  - INSOMNIA [None]
  - MENTAL DISORDER [None]
  - NERVOUSNESS [None]
  - PARANOIA [None]
  - SCHIZOPHRENIA [None]
  - SUICIDAL IDEATION [None]
  - WEIGHT DECREASED [None]
